FAERS Safety Report 8529526-6 (Version None)
Quarter: 2012Q3

REPORT INFORMATION
  Report Type: 
  Country: None (occurrence: None)
  Receive Date: 20120723
  Receipt Date: 20120711
  Transmission Date: 20120928
  Serious: Yes (Hospitalization)
  Sender: FDA-Public Use
  Company Number: DE-EISAI INC-E7389-02692-CLI-DE

PATIENT
  Sex: Male
  Weight: 52.1 kg

DRUGS (5)
  1. EPIRUBICIN HYDROCHLORIDE [Suspect]
     Indication: NON-SMALL CELL LUNG CANCER
     Route: 041
     Dates: start: 20120509
  2. PIPERACILLIN AND TAZOBACTAM [Concomitant]
     Route: 042
  3. CAPROS [Concomitant]
     Route: 048
  4. ACETYLCYSTEINE [Concomitant]
     Route: 048
  5. PREDNISOLONE [Concomitant]
     Route: 048

REACTIONS (1)
  - PNEUMONIA [None]
